FAERS Safety Report 21910468 (Version 1)
Quarter: 2023Q1

REPORT INFORMATION
  Report Type: Spontaneous
  Country: HR (occurrence: HR)
  Receive Date: 20230125
  Receipt Date: 20230125
  Transmission Date: 20230418
  Serious: Yes (Other)
  Sender: FDA-Public Use
  Company Number: None

PATIENT
  Age: 30 Year
  Sex: Female
  Weight: 70 kg

DRUGS (2)
  1. PREGABALIN [Suspect]
     Active Substance: PREGABALIN
     Indication: Product used for unknown indication
     Dosage: 4200 MILLIGRAM, QD, 14TBL.X300MG
     Route: 048
     Dates: start: 20221031, end: 20221031
  2. SERTRALINE HYDROCHLORIDE [Suspect]
     Active Substance: SERTRALINE HYDROCHLORIDE
     Indication: Product used for unknown indication
     Dosage: 700 MILLIGRAM, QD, 7TBL.X100MG
     Route: 048
     Dates: start: 20221030, end: 20221030

REACTIONS (7)
  - Unresponsive to stimuli [Unknown]
  - Suicide attempt [Unknown]
  - Coma [Unknown]
  - Vomiting [Unknown]
  - Dyspnoea [Unknown]
  - Hypotension [Unknown]
  - Intentional overdose [Unknown]

NARRATIVE: CASE EVENT DATE: 20221031
